FAERS Safety Report 18153254 (Version 2)
Quarter: 2020Q3

REPORT INFORMATION
  Report Type: Spontaneous
  Country: US (occurrence: US)
  Receive Date: 20200815
  Receipt Date: 20200926
  Transmission Date: 20201103
  Serious: Yes (Death, Life-Threatening, Hospitalization)
  Sender: FDA-Public Use
  Company Number: US-SERVIER-S20007654

PATIENT

DRUGS (6)
  1. ONCASPAR [Suspect]
     Active Substance: PEGASPARGASE
     Indication: ACUTE LYMPHOCYTIC LEUKAEMIA
     Dosage: 4075 IU (2500 IU/M2) ONE DOSE, ON DAY 4
     Route: 042
     Dates: start: 20200622, end: 20200622
  2. TN UNSPECIFIED [Concomitant]
     Indication: B PRECURSOR TYPE ACUTE LEUKAEMIA
     Dosage: FROM DAYS 1 TO 28
     Route: 065
  3. TN UNSPECIFIED [Concomitant]
     Indication: B PRECURSOR TYPE ACUTE LEUKAEMIA
     Dosage: ON DAYS 8,29
     Route: 037
  4. TN UNSPECIFIED [Concomitant]
     Indication: B PRECURSOR TYPE ACUTE LEUKAEMIA
     Dosage: ON DAYS 1,8,15,22
     Route: 065
  5. TN UNSPECIFIED [Concomitant]
     Indication: B PRECURSOR TYPE ACUTE LEUKAEMIA
     Dosage: ON DAY 1
     Route: 037
  6. TN UNSPECIFIED [Concomitant]
     Indication: B PRECURSOR TYPE ACUTE LEUKAEMIA
     Dosage: ON DAYS 1,8,15,22
     Route: 065

REACTIONS (2)
  - Cerebrovascular accident [Fatal]
  - Hypercoagulation [Fatal]

NARRATIVE: CASE EVENT DATE: 20200704
